FAERS Safety Report 5713007-9 (Version None)
Quarter: 2008Q2

REPORT INFORMATION
  Report Type: 
  Country: None (occurrence: None)
  Receive Date: 20080422
  Receipt Date: 20080410
  Transmission Date: 20081010
  Serious: Yes (Death)
  Sender: FDA-Public Use
  Company Number: CH-ROCHE-548741

PATIENT
  Age: 22 Year
  Sex: Male

DRUGS (1)
  1. ROACCUTAN [Suspect]
     Route: 048
     Dates: start: 19990112, end: 20000414

REACTIONS (1)
  - COMPLETED SUICIDE [None]
